FAERS Safety Report 9684118 (Version 1)
Quarter: 2013Q4

REPORT INFORMATION
  Report Type: Spontaneous
  Country: US (occurrence: None)
  Receive Date: 20131111
  Receipt Date: 20131111
  Transmission Date: 20140711
  Serious: No
  Sender: FDA-Public Use
  Company Number: None

PATIENT
  Age: 79 Year
  Sex: Male
  Weight: 83.92 kg

DRUGS (1)
  1. ZIOPTAN [Suspect]
     Indication: GLAUCOMA
     Dosage: ONE DROP IN EACH EYE, ONCE DAILY, INTO THE EYE
     Dates: start: 20131101, end: 20131105

REACTIONS (3)
  - Irritability [None]
  - Sleep disorder [None]
  - Abnormal sensation in eye [None]
